FAERS Safety Report 6259758-1 (Version None)
Quarter: 2009Q3

REPORT INFORMATION
  Report Type: 
  Country: None (occurrence: None)
  Receive Date: 20090708
  Receipt Date: 20090702
  Transmission Date: 20100115
  Serious: Yes (Other)
  Sender: FDA-Public Use
  Company Number: PHEH2009US07175

PATIENT
  Sex: Female
  Weight: 112.47 kg

DRUGS (1)
  1. RECLAST [Suspect]
     Indication: OSTEOPENIA
     Dosage: 5 MG YEARLY
     Route: 042
     Dates: start: 20090626

REACTIONS (4)
  - ERYTHEMA [None]
  - EYE IRRITATION [None]
  - HYPOCALCAEMIA [None]
  - MYALGIA [None]
